FAERS Safety Report 18076585 (Version 3)
Quarter: 2020Q3

REPORT INFORMATION
  Report Type: Report from Study
  Country: CA (occurrence: CA)
  Receive Date: 20200727
  Receipt Date: 20200903
  Transmission Date: 20201103
  Serious: Yes (Hospitalization, Other)
  Sender: FDA-Public Use
  Company Number: CA-JNJFOC-20200720972

PATIENT
  Age: 43 Year
  Sex: Female
  Weight: 61 kg

DRUGS (3)
  1. STELARA [Suspect]
     Active Substance: USTEKINUMAB
     Route: 058
  2. STELARA [Suspect]
     Active Substance: USTEKINUMAB
     Dosage: THE PATIENT RECEIVED 24TH 390 MG DOSE ON 24/AUG/2020 AND PARTIAL HARVEY?BRADSHAW WAS COMPLETED.
     Route: 042
     Dates: start: 20200824
  3. STELARA [Suspect]
     Active Substance: USTEKINUMAB
     Indication: CROHN^S DISEASE
     Dosage: RE?INDUCTION REQUESTED
     Route: 058
     Dates: start: 20151116

REACTIONS (4)
  - Crohn^s disease [Recovering/Resolving]
  - Squamous cell carcinoma [Unknown]
  - Off label use [Unknown]
  - Incorrect dose administered [Unknown]

NARRATIVE: CASE EVENT DATE: 20151116
